FAERS Safety Report 21914488 (Version 1)
Quarter: 2023Q1

REPORT INFORMATION
  Report Type: Spontaneous
  Country: GB (occurrence: GB)
  Receive Date: 20230126
  Receipt Date: 20230126
  Transmission Date: 20230418
  Serious: Yes (Other)
  Sender: FDA-Public Use
  Company Number: GB-MHRA-TPP54509968C3005765YC1673181459666

PATIENT
  Age: 1 Year
  Sex: Male
  Weight: 10 kg

DRUGS (4)
  1. AMOXICILLIN [Suspect]
     Active Substance: AMOXICILLIN
     Indication: Product used for unknown indication
     Dosage: 125 MILLIGRAM (125MG/5ML)
     Route: 065
     Dates: start: 20211017
  2. BECLOMETHASONE DIPROPIONATE [Concomitant]
     Active Substance: BECLOMETHASONE DIPROPIONATE
     Indication: Product used for unknown indication
     Dosage: 1 DOSAGE FORM, TWO TIMES A DAY
     Route: 055
     Dates: start: 20220714
  3. MONTELUKAST [Concomitant]
     Active Substance: MONTELUKAST SODIUM
     Indication: Product used for unknown indication
     Dosage: 1 DOSAGE FORM, ONCE A DAY(AT NIGHT)
     Route: 065
     Dates: start: 20221007
  4. ALBUTEROL [Concomitant]
     Active Substance: ALBUTEROL
     Indication: Dyspnoea
     Dosage: UNK UNK, AS NECESSARY (INHALE 2 DOSES AS NEEDED FOR BREATHLESSNESS OR)
     Route: 055
     Dates: start: 20221103

REACTIONS (3)
  - Dermatitis bullous [Recovered/Resolved]
  - Diarrhoea [Recovered/Resolved]
  - Wheezing [Recovered/Resolved]

NARRATIVE: CASE EVENT DATE: 20211017
